FAERS Safety Report 6502800-0 (Version None)
Quarter: 2009Q4

REPORT INFORMATION
  Report Type: 
  Country: None (occurrence: None)
  Receive Date: 20091127
  Receipt Date: 20090918
  Transmission Date: 20100525
  Serious: No
  Sender: FDA-Public Use
  Company Number: 001734

PATIENT
  Sex: Female
  Weight: 84.1 kg

DRUGS (3)
  1. LACOSAMIDE [Suspect]
     Indication: CONVULSION
     Dosage: 100 MG, THERAPY STARTED COUPLE OF WEEKS AGO ORAL
     Route: 048
  2. KEPPRA [Suspect]
     Indication: CONVULSION
     Dosage: 3000 MG ORAL
     Route: 048
     Dates: start: 20060101
  3. LAMICTAL [Concomitant]

REACTIONS (1)
  - ALOPECIA [None]
